FAERS Safety Report 21736924 (Version 1)
Quarter: 2022Q4

REPORT INFORMATION
  Report Type: Spontaneous
  Country: IL (occurrence: IL)
  Receive Date: 20221216
  Receipt Date: 20221216
  Transmission Date: 20230113
  Serious: Yes (Hospitalization)
  Sender: FDA-Public Use
  Company Number: IL-BIOGEN-2022BI01174967

PATIENT
  Age: 7 Year
  Sex: Male

DRUGS (1)
  1. SPINRAZA [Suspect]
     Active Substance: NUSINERSEN
     Indication: Spinal muscular atrophy
     Route: 050

REACTIONS (3)
  - Asphyxia [Recovered/Resolved with Sequelae]
  - Brain injury [Unknown]
  - Foreign body aspiration [Unknown]

NARRATIVE: CASE EVENT DATE: 20221101
